FAERS Safety Report 23308267 (Version 2)
Quarter: 2023Q4

REPORT INFORMATION
  Report Type: Spontaneous
  Country: US (occurrence: US)
  Receive Date: 20231218
  Receipt Date: 20231220
  Transmission Date: 20240110
  Serious: No
  Sender: FDA-Public Use
  Company Number: US-HALEON-USCH2023062676

PATIENT
  Age: 67 Year

DRUGS (1)
  1. CHAPSTICK NOS [Suspect]
     Active Substance: AVOBENZONE\HOMOSALATE\OCTINOXATE\OCTISALATE\OCTOCRYLENE\OXYBENZONE\TITANIUM DIOXIDE\ZINC OXIDE
     Indication: Product used for unknown indication
     Dosage: UNK
     Dates: start: 202101, end: 202309

REACTIONS (1)
  - Chapped lips [Recovered/Resolved]

NARRATIVE: CASE EVENT DATE: 20230101
